FAERS Safety Report 6810491-4 (Version None)
Quarter: 2010Q2

REPORT INFORMATION
  Report Type: 
  Country: None (occurrence: None)
  Receive Date: 20100630
  Receipt Date: 20100623
  Transmission Date: 20101027
  Serious: Yes (Other)
  Sender: FDA-Public Use
  Company Number: US-PFIZER INC-2010062361

PATIENT
  Sex: Female
  Weight: 70.295 kg

DRUGS (4)
  1. LIPITOR [Suspect]
     Indication: BLOOD TRIGLYCERIDES INCREASED
     Dosage: 20 MG, 1X/DAY
     Route: 048
     Dates: start: 20100507, end: 20100509
  2. LIPITOR [Suspect]
     Indication: LOW DENSITY LIPOPROTEIN INCREASED
  3. LISINOPRIL [Concomitant]
     Indication: HYPERTENSION
     Dosage: UNK
  4. MAXALT [Concomitant]
     Indication: MIGRAINE
     Dosage: UNK

REACTIONS (3)
  - MUSCLE FATIGUE [None]
  - MYALGIA [None]
  - SENSATION OF HEAVINESS [None]
